FAERS Safety Report 9290148 (Version 3)
Quarter: 2013Q4

REPORT INFORMATION
  Report Type: Spontaneous
  Country: FR (occurrence: FR)
  Receive Date: 20130515
  Receipt Date: 20131213
  Transmission Date: 20140711
  Serious: Yes (Other)
  Sender: FDA-Public Use
  Company Number: FR-AMGEN-FRASP2013034101

PATIENT
  Age: 39 Year
  Sex: Female

DRUGS (1)
  1. ENBREL [Suspect]
     Indication: PSORIASIS
     Dosage: 25 MG, WEEKLY
     Route: 058
     Dates: start: 20120825, end: 201211

REACTIONS (11)
  - Dental necrosis [Recovering/Resolving]
  - Onycholysis [Recovering/Resolving]
  - Arthralgia [Unknown]
  - Nail disorder [Unknown]
  - Nail discolouration [Unknown]
  - Drug ineffective [Unknown]
  - Tooth infection [Recovering/Resolving]
  - Skin infection [Recovering/Resolving]
  - Ecthyma [Recovering/Resolving]
  - Tooth abscess [Recovering/Resolving]
  - Nail psoriasis [Recovering/Resolving]
